FAERS Safety Report 16696398 (Version 3)
Quarter: 2019Q4

REPORT INFORMATION
  Report Type: Report from Study
  Country: None (occurrence: GB)
  Receive Date: 20190813
  Receipt Date: 20191107
  Transmission Date: 20200122
  Serious: Yes (Hospitalization)
  Sender: FDA-Public Use
  Company Number: GB-ABBVIE-19K-167-2884844-00

PATIENT
  Sex: Female

DRUGS (2)
  1. DUODOPA [Suspect]
     Active Substance: CARBIDOPA\LEVODOPA
     Dosage: 100ML CASSETTE DAILY?5MG/1ML?20MG/1ML?DOSE INCREASED
     Route: 050
     Dates: start: 2019
  2. DUODOPA [Suspect]
     Active Substance: CARBIDOPA\LEVODOPA
     Indication: PARKINSON^S DISEASE
     Dosage: 100ML CASSETTE DAILY?5MG/1ML?20MG/1ML
     Route: 050
     Dates: end: 2019

REACTIONS (5)
  - Pain [Unknown]
  - Hip fracture [Unknown]
  - Fall [Unknown]
  - Parkinson^s disease [Unknown]
  - Bradykinesia [Unknown]

NARRATIVE: CASE EVENT DATE: 2019
